FAERS Safety Report 10409959 (Version 1)
Quarter: 2014Q3

REPORT INFORMATION
  Report Type: Spontaneous
  Country: GB (occurrence: None)
  Receive Date: 20140708
  Receipt Date: 20140708
  Transmission Date: 20150326
  Serious: Yes (Other)
  Sender: FDA-Public Use
  Company Number: AUR-APL-2014-06154

PATIENT
  Age: 42 Year
  Sex: Male

DRUGS (7)
  1. LAMOTRIGINE (LAMOTRIGINE) [Suspect]
     Active Substance: LAMOTRIGINE
     Indication: PRODUCT USED FOR UNKNOWN INDICATION
  2. CARBAMAZEPINE (CARBAMAZEPINE) [Suspect]
     Active Substance: CARBAMAZEPINE
     Indication: PRODUCT USED FOR UNKNOWN INDICATION
     Dates: start: 1988
  3. VALPROIC ACID (VALPROIC ACID) [Suspect]
     Active Substance: VALPROIC ACID
     Indication: PRODUCT USED FOR UNKNOWN INDICATION
  4. LAMICTAL [Suspect]
     Active Substance: LAMOTRIGINE
     Indication: EPILEPSY
     Dates: start: 200309
  5. MIDAZOLAM [Suspect]
     Active Substance: MIDAZOLAM\MIDAZOLAM HYDROCHLORIDE
     Indication: PRODUCT USED FOR UNKNOWN INDICATION
  6. TEGRETOL [Suspect]
     Active Substance: CARBAMAZEPINE
     Indication: EPILEPSY
  7. TOPIRAMATE (TOPIRAMATE) [Suspect]
     Active Substance: TOPIRAMATE
     Indication: PRODUCT USED FOR UNKNOWN INDICATION

REACTIONS (44)
  - Aggression [None]
  - Depressed level of consciousness [None]
  - Distractibility [None]
  - Emotional distress [None]
  - Fear [None]
  - Hyperexplexia [None]
  - Malaise [None]
  - Musculoskeletal stiffness [None]
  - Upper respiratory tract infection [None]
  - Epilepsy [None]
  - Complex partial seizures [None]
  - Decreased appetite [None]
  - Diarrhoea [None]
  - Psychotic disorder [None]
  - Fatigue [None]
  - Ataxia [None]
  - Dyskinesia [None]
  - Bone density decreased [None]
  - Generalised tonic-clonic seizure [None]
  - Depressed mood [None]
  - Toxicity to various agents [None]
  - Euphoric mood [None]
  - Gait disturbance [None]
  - Microcephaly [None]
  - Convulsion [None]
  - Anxiety [None]
  - Abnormal behaviour [None]
  - Catatonia [None]
  - Tonic clonic movements [None]
  - Agitation [None]
  - Balance disorder [None]
  - Cerebral ventricle dilatation [None]
  - Drug level increased [None]
  - Emotional disorder [None]
  - Frustration [None]
  - Gastrointestinal disorder [None]
  - Irritability [None]
  - Insomnia [None]
  - Staring [None]
  - Petit mal epilepsy [None]
  - Tremor [None]
  - Stress [None]
  - Hallucination [None]
  - Suspiciousness [None]

NARRATIVE: CASE EVENT DATE: 199304
